FAERS Safety Report 6501529-2 (Version None)
Quarter: 2009Q4

REPORT INFORMATION
  Report Type: 
  Country: None (occurrence: None)
  Receive Date: 20091216
  Receipt Date: 20091214
  Transmission Date: 20100525
  Serious: Yes (Hospitalization)
  Sender: FDA-Public Use
  Company Number: B0597749A

PATIENT
  Sex: Female
  Weight: 108.5 kg

DRUGS (14)
  1. TOPOTECAN [Suspect]
     Dosage: 3.1MG EVERY 3 WEEKS
     Route: 042
     Dates: start: 20090824
  2. METOCLOPRAMIDE [Concomitant]
  3. TRIAMTERENE AND HYDROCHLOROTHIAZIDE [Concomitant]
  4. NEURONTIN [Concomitant]
     Dosage: 1800MG UNKNOWN
  5. IBUPROFEN [Concomitant]
  6. PANTOZOL [Concomitant]
     Dosage: 40MG PER DAY
  7. SODIUM CHLORIDE 0.9% [Concomitant]
     Dosage: 1000ML UNKNOWN
  8. OSMOFUNDIN [Concomitant]
  9. DEXAMETHASONE [Concomitant]
     Dosage: 8MG UNKNOWN
  10. METOCLOPRAMIDE HYDROCHLORIDE [Concomitant]
  11. VOMEX [Concomitant]
  12. LORAZEPAM [Concomitant]
     Dosage: 1MG UNKNOWN
  13. LACTULOSE [Concomitant]
  14. STRUCTOKABIVEN [Concomitant]

REACTIONS (3)
  - GAIT DISTURBANCE [None]
  - GENERAL PHYSICAL HEALTH DETERIORATION [None]
  - MUSCULAR WEAKNESS [None]
